FAERS Safety Report 15570110 (Version 3)
Quarter: 2018Q4

REPORT INFORMATION
  Report Type: Spontaneous
  Country: FI (occurrence: FI)
  Receive Date: 20181031
  Receipt Date: 20181123
  Transmission Date: 20190205
  Serious: Yes (Death, Hospitalization, Other)
  Sender: FDA-Public Use
  Company Number: FI-AUROBINDO-AUR-APL-2018-052672

PATIENT
  Age: 38 Year
  Sex: Female

DRUGS (8)
  1. OLANZAPINE. [Suspect]
     Active Substance: OLANZAPINE
     Indication: PRODUCT USED FOR UNKNOWN INDICATION
     Dosage: UNK ()
     Route: 065
     Dates: start: 201807, end: 201807
  2. LEPONEX [Suspect]
     Active Substance: CLOZAPINE
     Dosage: 1 DOSAGE FORM, ONCE A DAY, (THIRD TRIMESTER EXPOSURE)
     Route: 065
     Dates: start: 20180711
  3. LEPONEX [Suspect]
     Active Substance: CLOZAPINE
     Dosage: 75 MILLIGRAM, ONCE A DAY, (THIRD TRIMESTER EXPOSURE)
     Route: 065
     Dates: start: 201807, end: 201807
  4. PERATSIN [Concomitant]
     Active Substance: PERPHENAZINE
     Indication: PRODUCT USED FOR UNKNOWN INDICATION
     Dosage: 4 DOSAGE FORM, ONCE A DAY (2 DF, BID)
     Route: 065
  5. VENLAFAXINE [Concomitant]
     Active Substance: VENLAFAXINE HYDROCHLORIDE
     Indication: PRODUCT USED FOR UNKNOWN INDICATION
     Dosage: 2 DOSAGE FORM, ONCE A DAY
     Route: 065
  6. LEPONEX [Suspect]
     Active Substance: CLOZAPINE
     Dosage: 375 MILLIGRAM, ONCE A DAY, (THIRD TRIMESTER EXPOSURE)
     Route: 065
  7. LEPONEX [Suspect]
     Active Substance: CLOZAPINE
     Indication: SCHIZOAFFECTIVE DISORDER
     Dosage: 1 DF (300-375 MG), QD
     Route: 065
  8. OPAMOX [Concomitant]
     Active Substance: OXAZEPAM
     Indication: PRODUCT USED FOR UNKNOWN INDICATION
     Dosage: 15 MILLIGRAM
     Route: 065

REACTIONS (12)
  - Cardiac failure acute [Fatal]
  - Anxiety [Unknown]
  - Drug effect incomplete [Unknown]
  - Maternal exposure during pregnancy [Recovered/Resolved]
  - Caesarean section [Unknown]
  - Mental impairment [Unknown]
  - Congestive cardiomyopathy [Fatal]
  - Off label use [Recovered/Resolved]
  - Suicidal behaviour [Unknown]
  - Cardiogenic shock [Fatal]
  - Cardiac function disturbance postoperative [Fatal]
  - Insomnia [Unknown]

NARRATIVE: CASE EVENT DATE: 201807
